FAERS Safety Report 7726158-4 (Version None)
Quarter: 2011Q3

REPORT INFORMATION
  Report Type: 
  Country: None (occurrence: None)
  Receive Date: 20110902
  Receipt Date: 20110819
  Transmission Date: 20111222
  Serious: Yes (Other)
  Sender: FDA-Public Use
  Company Number: BR-ALEXION-A201101334

PATIENT
  Age: 40 Year
  Sex: Male

DRUGS (2)
  1. SOLIRIS [Suspect]
     Indication: PAROXYSMAL NOCTURNAL HAEMOGLOBINURIA
     Dosage: 600 MG, UNK
     Route: 042
     Dates: start: 20110526, end: 20110808
  2. SOLIRIS [Suspect]
     Dosage: 900 MG, UNK
     Dates: start: 20110817

REACTIONS (2)
  - DRUG ADMINISTRATION ERROR [None]
  - HAEMOLYSIS [None]
